FAERS Safety Report 13860066 (Version 17)
Quarter: 2018Q1

REPORT INFORMATION
  Report Type: Spontaneous
  Country: US (occurrence: US)
  Receive Date: 20170811
  Receipt Date: 20180130
  Transmission Date: 20180508
  Serious: Yes (Hospitalization)
  Sender: FDA-Public Use
  Company Number: US-PFIZER INC-2017309874

PATIENT
  Age: 75 Year
  Sex: Male
  Weight: 77 kg

DRUGS (5)
  1. BUSPAR [Concomitant]
     Active Substance: BUSPIRONE HYDROCHLORIDE
     Dosage: UNK
     Dates: start: 20170406
  2. SUTENT [Suspect]
     Active Substance: SUNITINIB MALATE
     Indication: METASTATIC RENAL CELL CARCINOMA
     Dosage: 50 MG, CYCLIC, (50 MG DAILY FOR 2 WEEKS ON / 1 WEEK OFF)
     Dates: start: 20170801
  3. PRORENAL VITAL [Suspect]
     Active Substance: VITAMINS
     Indication: RENAL DISORDER
     Dosage: UNK, DAILY (2 DAILY)
     Dates: start: 20090101
  4. METFORMIN [Concomitant]
     Active Substance: METFORMIN HYDROCHLORIDE
     Dosage: UNK
     Dates: start: 20171026
  5. ATORVASTATIN CALCIUM. [Suspect]
     Active Substance: ATORVASTATIN CALCIUM
     Indication: BLOOD CHOLESTEROL INCREASED
     Dosage: 20 MG, 1X/DAY (AT BED TIME)
     Dates: start: 20151123

REACTIONS (30)
  - Pain [Unknown]
  - Productive cough [Not Recovered/Not Resolved]
  - Vertigo [Unknown]
  - Dysgeusia [Not Recovered/Not Resolved]
  - Dry skin [Recovered/Resolved]
  - Fatigue [Not Recovered/Not Resolved]
  - Diarrhoea [Recovered/Resolved]
  - Chills [Unknown]
  - Constipation [Not Recovered/Not Resolved]
  - Asthenopia [Unknown]
  - Dizziness [Not Recovered/Not Resolved]
  - Urine flow decreased [Recovered/Resolved]
  - Somnolence [Recovered/Resolved]
  - Boredom [Recovered/Resolved]
  - Feeling abnormal [Recovered/Resolved]
  - Malaise [Unknown]
  - Headache [Recovered/Resolved]
  - Arthralgia [Not Recovered/Not Resolved]
  - Nasopharyngitis [Not Recovered/Not Resolved]
  - Anxiety [Unknown]
  - Cough [Not Recovered/Not Resolved]
  - Hypertension [Unknown]
  - Nasal dryness [Not Recovered/Not Resolved]
  - Decreased appetite [Recovered/Resolved]
  - Sneezing [Unknown]
  - Weight increased [Not Recovered/Not Resolved]
  - Pallor [Recovering/Resolving]
  - Asthenia [Recovered/Resolved]
  - Temperature intolerance [Recovered/Resolved]
  - Pyrexia [Unknown]

NARRATIVE: CASE EVENT DATE: 2017
